FAERS Safety Report 4796629-1 (Version None)
Quarter: 2005Q3

REPORT INFORMATION
  Report Type: 
  Country: None (occurrence: None)
  Receive Date: 20050916
  Receipt Date: 20041129
  Transmission Date: 20060218
  Serious: Yes (Hospitalization)
  Sender: FDA-Public Use
  Company Number: US-JNJFOC-20041200205

PATIENT
  Age: 50 Year
  Sex: Male

DRUGS (5)
  1. TOPAMAX [Suspect]
     Indication: DRUG THERAPY
     Dosage: 100 MG, 1 IN 1 DAY, ORAL
     Route: 048
  2. LEXAPRO [Concomitant]
  3. WELLBUTRIN [Concomitant]
  4. DOXYCYCLINE [Concomitant]
  5. ACYCLOVIR [Concomitant]

REACTIONS (1)
  - PULMONARY EMBOLISM [None]
